FAERS Safety Report 5427747-2 (Version None)
Quarter: 2007Q3

REPORT INFORMATION
  Report Type: 
  Country: None (occurrence: None)
  Receive Date: 20070828
  Receipt Date: 20070817
  Transmission Date: 20080115
  Serious: Yes (Hospitalization, Other)
  Sender: FDA-Public Use
  Company Number: US-ELI_LILLY_AND_COMPANY-US200707004153

PATIENT
  Age: 52 Year
  Sex: Male
  Weight: 118.37 kg

DRUGS (8)
  1. BYETTA [Suspect]
     Indication: BLOOD GLUCOSE
     Dosage: 5 UG, 2/D
     Route: 058
     Dates: start: 20060202, end: 20060518
  2. ASPIRIN [Concomitant]
     Dosage: 81 MG, DAILY (1/D)
     Route: 048
  3. AVANDIA [Concomitant]
     Dosage: 4 MG, DAILY (1/D)
     Route: 048
  4. GLUCOPHAGE [Concomitant]
     Dosage: 1000 MG, 2/D
  5. GLYBURIDE [Concomitant]
     Dosage: 5 MG, 2/D
     Route: 048
  6. PAXIL [Concomitant]
     Dosage: 30 MG, DAILY (1/D)
  7. ZESTRIL [Concomitant]
     Dosage: 10 MG, DAILY (1/D)
     Route: 048
  8. ZOCOR [Concomitant]
     Dosage: 40 MG, EACH EVENING
     Route: 048

REACTIONS (6)
  - EMPHYSEMA [None]
  - HYDRONEPHROSIS [None]
  - LUNG NEOPLASM [None]
  - NEPHROLITHIASIS [None]
  - NODULE [None]
  - VOMITING [None]
